FAERS Safety Report 4425176-1 (Version None)
Quarter: 2004Q3

REPORT INFORMATION
  Report Type: 
  Country: None (occurrence: None)
  Receive Date: 20040813
  Receipt Date: 20040728
  Transmission Date: 20050211
  Serious: Yes (Hospitalization)
  Sender: FDA-Public Use
  Company Number: JP-JNJFOC-20031201333

PATIENT
  Sex: Male
  Weight: 59.5 kg

DRUGS (5)
  1. GALANTAMINE [Suspect]
     Route: 049
     Dates: start: 20030312, end: 20031203
  2. GALANTAMINE [Suspect]
     Route: 049
     Dates: start: 20030312, end: 20031203
  3. GALANTAMINE [Suspect]
     Route: 049
     Dates: start: 20030312, end: 20031203
  4. ROCORNAL [Concomitant]
     Indication: ANGINA PECTORIS
     Route: 049
     Dates: end: 20031203
  5. PURSENNID [Concomitant]
     Indication: CONSTIPATION
     Route: 049
     Dates: end: 20031203

REACTIONS (5)
  - ANGINA PECTORIS [None]
  - MYOCARDIAL INFARCTION [None]
  - PULMONARY CONGESTION [None]
  - RESPIRATORY FAILURE [None]
  - VENTRICULAR EXTRASYSTOLES [None]
